FAERS Safety Report 6805259-9 (Version None)
Quarter: 2010Q2

REPORT INFORMATION
  Report Type: 
  Country: None (occurrence: None)
  Receive Date: 20100628
  Receipt Date: 20071113
  Transmission Date: 20101027
  Serious: No
  Sender: FDA-Public Use
  Company Number: US-PFIZER INC-2007084087

PATIENT
  Sex: Female
  Weight: 19 kg

DRUGS (1)
  1. GENOTROPIN [Suspect]
     Indication: GROWTH HORMONE DEFICIENCY
     Dosage: 6 DAYS A WEEK
     Dates: start: 20070801

REACTIONS (2)
  - ANGER [None]
  - MOOD SWINGS [None]
